FAERS Safety Report 14636318 (Version 2)
Quarter: 2020Q1

REPORT INFORMATION
  Report Type: Report from Study
  Country: JP (occurrence: JP)
  Receive Date: 20180314
  Receipt Date: 20200121
  Transmission Date: 20200409
  Serious: Yes (Life-Threatening, Hospitalization, Other)
  Sender: FDA-Public Use
  Company Number: JP-CLINIGEN GROUP PLC/ CLINIGEN HEALTHCARE LTD-JP-CLGN-18-00085

PATIENT
  Age: 79 Year
  Sex: Female
  Weight: 49.1 kg

DRUGS (26)
  1. SAVENE [Suspect]
     Active Substance: DEXRAZOXANE
     Indication: INFUSION SITE EXTRAVASATION
     Route: 041
     Dates: start: 20151215, end: 20151216
  2. DERMOVATE [Concomitant]
     Active Substance: CLOBETASOL
     Indication: INFUSION SITE EXTRAVASATION
     Route: 003
     Dates: start: 20151215, end: 20151215
  3. HEPARIN [Concomitant]
     Active Substance: HEPARIN SODIUM
     Indication: PROPHYLAXIS
     Route: 065
     Dates: end: 20151210
  4. RITUXAN [Suspect]
     Active Substance: RITUXIMAB
     Indication: PRODUCT USED FOR UNKNOWN INDICATION
     Route: 041
  5. PREDONINE [Suspect]
     Active Substance: PREDNISOLONE
     Indication: PRODUCT USED FOR UNKNOWN INDICATION
     Route: 048
     Dates: start: 20151215
  6. BARACLUDE [Concomitant]
     Active Substance: ENTECAVIR
     Indication: PROPHYLAXIS
     Route: 048
  7. LANSOPRAZOLE OD [Concomitant]
     Active Substance: LANSOPRAZOLE
     Indication: PROPHYLAXIS
     Route: 048
  8. EMEND [Suspect]
     Active Substance: APREPITANT
     Indication: PROPHYLAXIS
     Route: 048
     Dates: start: 20151215, end: 20151215
  9. NEUTROGIN [Suspect]
     Active Substance: LENOGRASTIM
     Indication: BONE MARROW FAILURE
     Route: 065
     Dates: start: 20151225, end: 20151228
  10. LASIX [Suspect]
     Active Substance: FUROSEMIDE
     Indication: PROPHYLAXIS
     Route: 042
     Dates: start: 20151215, end: 20151217
  11. RINDERON [Concomitant]
     Indication: INFUSION SITE EXTRAVASATION
     Route: 065
     Dates: start: 20151215, end: 20151215
  12. MEYLON [Concomitant]
     Active Substance: SODIUM BICARBONATE
     Indication: PROPHYLAXIS
     Route: 042
     Dates: end: 20151216
  13. THERARUBICIN [Suspect]
     Active Substance: PIRARUBICIN HYDROCHLORIDE
     Indication: DIFFUSE LARGE B-CELL LYMPHOMA
     Route: 042
     Dates: start: 20151215, end: 20151215
  14. DISTILLED WATER [Concomitant]
     Indication: MEDICATION DILUTION
     Route: 041
     Dates: start: 20151215, end: 20151217
  15. MAGNESIUM OXIDE. [Concomitant]
     Active Substance: MAGNESIUM OXIDE
     Indication: PRODUCT USED FOR UNKNOWN INDICATION
     Route: 048
  16. EDIROL [Concomitant]
     Active Substance: ELDECALCITOL
     Indication: PRODUCT USED FOR UNKNOWN INDICATION
     Route: 048
     Dates: end: 20150106
  17. MEYLON [Concomitant]
     Active Substance: SODIUM BICARBONATE
     Route: 042
     Dates: end: 20151216
  18. AZILVA [Concomitant]
     Active Substance: AZILSARTAN KAMEDOXOMIL
     Indication: HYPERTENSION
     Route: 048
  19. SAVENE [Suspect]
     Active Substance: DEXRAZOXANE
     Route: 041
     Dates: start: 20151217, end: 20151217
  20. LIDOCAINE HYDROCHLORIDE. [Concomitant]
     Active Substance: LIDOCAINE HYDROCHLORIDE
     Indication: INFUSION SITE EXTRAVASATION
     Route: 065
     Dates: start: 20151215, end: 20151215
  21. GLUCOSE [Concomitant]
     Active Substance: DEXTROSE
     Indication: MEDICATION DILUTION
     Route: 041
     Dates: start: 20151215, end: 20151217
  22. FEBURIC [Concomitant]
     Active Substance: FEBUXOSTAT
     Indication: PROPHYLAXIS
     Route: 048
  23. ONCOVIN [Suspect]
     Active Substance: VINCRISTINE SULFATE
     Indication: DIFFUSE LARGE B-CELL LYMPHOMA
     Route: 042
     Dates: start: 20151215, end: 20151215
  24. ENDOXAN [Suspect]
     Active Substance: CYCLOPHOSPHAMIDE
     Indication: DIFFUSE LARGE B-CELL LYMPHOMA
     Route: 042
     Dates: start: 20151215, end: 20151215
  25. GRANISETRON [Suspect]
     Active Substance: GRANISETRON
     Indication: PROPHYLAXIS
     Route: 042
     Dates: start: 20151215, end: 20151215
  26. SOLDEM 1 [Concomitant]
     Active Substance: DEXTROSE\SODIUM CHLORIDE\SODIUM LACTATE
     Indication: PROPHYLAXIS
     Route: 041
     Dates: end: 20151217

REACTIONS (8)
  - Constipation [Recovering/Resolving]
  - Bone marrow failure [Recovering/Resolving]
  - Back pain [Recovering/Resolving]
  - Hypertension [Recovered/Resolved]
  - Basophil count increased [Recovering/Resolving]
  - Blood creatinine increased [Recovering/Resolving]
  - Hyperkalaemia [Recovered/Resolved]
  - Aspartate aminotransferase increased [Recovered/Resolved]

NARRATIVE: CASE EVENT DATE: 20151216
